FAERS Safety Report 21101288 (Version 1)
Quarter: 2022Q3

REPORT INFORMATION
  Report Type: Spontaneous
  Country: US (occurrence: US)
  Receive Date: 20220719
  Receipt Date: 20220719
  Transmission Date: 20221027
  Serious: No
  Sender: FDA-Public Use
  Company Number: US-PFIZER INC-202200966480

PATIENT
  Age: 76 Year
  Sex: Male
  Weight: 84.82 kg

DRUGS (1)
  1. PAXLOVID [Suspect]
     Active Substance: NIRMATRELVIR\RITONAVIR
     Indication: COVID-19 treatment
     Dosage: 3 DF, 2X/DAY(MORNING TAKE 3 TABLETS, EVENING TAKE 3 TABLETS)
     Dates: start: 20220714

REACTIONS (3)
  - Dysgeusia [Unknown]
  - Product taste abnormal [Unknown]
  - Cough [Unknown]

NARRATIVE: CASE EVENT DATE: 20220714
